FAERS Safety Report 10222421 (Version 3)
Quarter: 2014Q2

REPORT INFORMATION
  Report Type: Report from Study
  Country: US (occurrence: US)
  Receive Date: 20140606
  Receipt Date: 20140616
  Transmission Date: 20141212
  Serious: Yes (Death, Hospitalization, Other)
  Sender: FDA-Public Use
  Company Number: US-ACTELION-A-NJ2014-99330

PATIENT
  Age: 49 Year
  Sex: Female

DRUGS (4)
  1. MACITENTAN [Suspect]
     Indication: PULMONARY ARTERIAL HYPERTENSION
     Dosage: 10 MG, QD
     Route: 048
     Dates: start: 20131205, end: 20140415
  2. VENTAVIS [Suspect]
     Indication: PULMONARY ARTERIAL HYPERTENSION
     Dosage: 5 MCG, 6-9/DAY
     Route: 055
     Dates: start: 20090923
  3. WARFARIN [Concomitant]
     Dosage: 4 MG, QD
     Dates: start: 20140121
  4. REMODULIN [Concomitant]
     Route: 042

REACTIONS (17)
  - Pulmonary arterial hypertension [Fatal]
  - Disease progression [Fatal]
  - Oedema peripheral [Not Recovered/Not Resolved]
  - Dyspnoea [Not Recovered/Not Resolved]
  - Fluid retention [Not Recovered/Not Resolved]
  - Aspiration [Unknown]
  - Liver function test abnormal [Unknown]
  - Cor pulmonale [Fatal]
  - Pulmonary arterial pressure increased [Fatal]
  - Nausea [Unknown]
  - Vomiting [Unknown]
  - Right ventricular systolic pressure increased [Fatal]
  - Right atrial pressure increased [Fatal]
  - Acute respiratory distress syndrome [Unknown]
  - Aspartate aminotransferase increased [Unknown]
  - Blood alkaline phosphatase increased [Unknown]
  - Blood bilirubin increased [Unknown]
